FAERS Safety Report 22006649 (Version 1)
Quarter: 2023Q1

REPORT INFORMATION
  Report Type: Other
  Country: None (occurrence: JP)
  Receive Date: 20230217
  Receipt Date: 20230217
  Transmission Date: 20230418
  Serious: Yes (Hospitalization, Other)
  Sender: FDA-Public Use
  Company Number: JP-Spectra Medical Devices, LLC-2138076

PATIENT
  Age: 37 Year
  Sex: Female
  Weight: 53 kg

DRUGS (6)
  1. SODIUM CHLORIDE [Suspect]
     Active Substance: SODIUM CHLORIDE
     Indication: Bronchoalveolar lavage
     Route: 065
  2. PROPOFOL [Concomitant]
     Active Substance: PROPOFOL
     Route: 065
  3. REMIFENTANIL HYDROCHLORIDE [Concomitant]
     Active Substance: REMIFENTANIL HYDROCHLORIDE
     Route: 065
  4. ROCURONIUM [Concomitant]
     Active Substance: ROCURONIUM BROMIDE
     Route: 065
  5. Acetate Ringer^s [Concomitant]
     Route: 065
  6. Carbonate Ringer^s [Concomitant]
     Route: 065

REACTIONS (1)
  - Acidosis hyperchloraemic [Recovered/Resolved]
